FAERS Safety Report 12705816 (Version 2)
Quarter: 2016Q3

REPORT INFORMATION
  Report Type: Spontaneous
  Country: CN (occurrence: CN)
  Receive Date: 20160901
  Receipt Date: 20160908
  Transmission Date: 20161109
  Serious: Yes (Other)
  Sender: FDA-Public Use
  Company Number: CN-ASTRAZENECA-2016SE84557

PATIENT
  Age: 11 Year
  Sex: Male

DRUGS (11)
  1. SYMBICORT [Suspect]
     Active Substance: BUDESONIDE\FORMOTEROL FUMARATE DIHYDRATE
     Indication: ASTHMA
     Dosage: 80+4.5 UG, ONE INHALATION DAILY
     Route: 055
  2. COUGH MEDICINE [Concomitant]
     Active Substance: UNSPECIFIED INGREDIENT
     Indication: COUGH
  3. SYMBICORT [Suspect]
     Active Substance: BUDESONIDE\FORMOTEROL FUMARATE DIHYDRATE
     Indication: ASTHMA
     Dosage: 1 TIME EVERY 2 DAYS UNKNOWN
     Route: 055
  4. SYMBICORT [Suspect]
     Active Substance: BUDESONIDE\FORMOTEROL FUMARATE DIHYDRATE
     Indication: ASTHMA
     Dosage: 80+4.5 UG, 1 TIME EVERY 3 DAYS UNKNOWN
     Route: 055
  5. SYMBICORT [Suspect]
     Active Substance: BUDESONIDE\FORMOTEROL FUMARATE DIHYDRATE
     Indication: ASTHMA
     Dosage: ONCE A DAY UNKNOWN
     Route: 055
  6. ANTI-ALLERGEN DRUG [Concomitant]
  7. SYMBICORT [Suspect]
     Active Substance: BUDESONIDE\FORMOTEROL FUMARATE DIHYDRATE
     Indication: ASTHMA
     Dosage: 80+4.5 UG, 2 TIMES EVERY 3 DAYS UNKNOWN
     Route: 055
  8. SYMBICORT [Suspect]
     Active Substance: BUDESONIDE\FORMOTEROL FUMARATE DIHYDRATE
     Indication: ASTHMA
     Dosage: 80+4.5 UG, ONE INHALATION BID
     Route: 055
     Dates: start: 2014
  9. MONTELUKAST [Concomitant]
     Active Substance: MONTELUKAST SODIUM
     Indication: ASTHMA
     Route: 048
     Dates: end: 201607
  10. NUCLEOTIDE AND CASEIN [Concomitant]
     Indication: IMMUNODEFICIENCY
     Route: 048
  11. YOUER [Concomitant]

REACTIONS (12)
  - Suffocation feeling [Unknown]
  - Cough [Unknown]
  - Device use error [Unknown]
  - Medication error [Unknown]
  - Product use issue [Unknown]
  - Discomfort [Recovered/Resolved]
  - Nasopharyngitis [Unknown]
  - Drug dose omission [Unknown]
  - Pulmonary embolism [Unknown]
  - Weight increased [Not Recovered/Not Resolved]
  - Asthma [Recovered/Resolved]
  - Growth retardation [Unknown]

NARRATIVE: CASE EVENT DATE: 2014
